FAERS Safety Report 18113623 (Version 2)
Quarter: 2021Q1

REPORT INFORMATION
  Report Type: Spontaneous
  Country: None (occurrence: US)
  Receive Date: 20200805
  Receipt Date: 20210319
  Transmission Date: 20210419
  Serious: Yes (Other)
  Sender: FDA-Public Use
  Company Number: US-GLAXOSMITHKLINE-US2020150485

PATIENT
  Sex: Male

DRUGS (8)
  1. ZANTAC [Suspect]
     Active Substance: RANITIDINE HYDROCHLORIDE
  2. ZANTAC [Suspect]
     Active Substance: RANITIDINE HYDROCHLORIDE
     Indication: LIVER DISORDER
     Dosage: 150 MG, QD
     Route: 065
     Dates: start: 200503, end: 201605
  3. ZANTAC [Suspect]
     Active Substance: RANITIDINE HYDROCHLORIDE
     Indication: LIVER DISORDER
     Dosage: 150 MG, QD
     Route: 065
     Dates: start: 200503, end: 201605
  4. ZANTAC [Suspect]
     Active Substance: RANITIDINE HYDROCHLORIDE
  5. RANITIDINE. [Suspect]
     Active Substance: RANITIDINE
     Indication: LIVER DISORDER
     Dosage: 150 MG, QD
     Route: 065
     Dates: start: 200503, end: 201605
  6. ZANTAC [Suspect]
     Active Substance: RANITIDINE HYDROCHLORIDE
     Indication: LIVER DISORDER
     Dosage: 150 MG, QD
     Route: 065
     Dates: start: 200503, end: 201605
  7. RANITIDINE. [Suspect]
     Active Substance: RANITIDINE
     Indication: LIVER DISORDER
     Dosage: 150 MG, QD
     Route: 065
     Dates: start: 200503, end: 201605
  8. RANITIDINE CAPSULE [Suspect]
     Active Substance: RANITIDINE
     Indication: LIVER DISORDER
     Dosage: 150 MG, QD
     Route: 065
     Dates: start: 200503, end: 201605

REACTIONS (2)
  - Colorectal cancer [Unknown]
  - Hepatic cancer [Unknown]
